APPROVED DRUG PRODUCT: KANAMYCIN SULFATE
Active Ingredient: KANAMYCIN SULFATE
Strength: EQ 75MG BASE/2ML
Dosage Form/Route: INJECTABLE;INJECTION
Application: A062504 | Product #001
Applicant: ABRAXIS PHARMACEUTICAL PRODUCTS
Approved: Apr 5, 1984 | RLD: No | RS: No | Type: DISCN